FAERS Safety Report 14763883 (Version 1)
Quarter: 2018Q2

REPORT INFORMATION
  Report Type: Spontaneous
  Country: RU (occurrence: RU)
  Receive Date: 20180416
  Receipt Date: 20180416
  Transmission Date: 20180711
  Serious: Yes (Other)
  Sender: FDA-Public Use
  Company Number: RU-BAYER-2018-070472

PATIENT
  Age: 46 Year
  Sex: Female

DRUGS (1)
  1. QLAIRA [Suspect]
     Active Substance: DIENOGEST\ESTRADIOL VALERATE
     Indication: CONTRACEPTION
     Dosage: 1 DF, QD
     Route: 048
     Dates: start: 2016, end: 201803

REACTIONS (3)
  - Vaginal haemorrhage [Recovered/Resolved]
  - Drug-induced liver injury [Not Recovered/Not Resolved]
  - Vaginal odour [None]

NARRATIVE: CASE EVENT DATE: 201803
